FAERS Safety Report 10691822 (Version 2)
Quarter: 2015Q1

REPORT INFORMATION
  Report Type: Spontaneous
  Country: US (occurrence: US)
  Receive Date: 20150105
  Receipt Date: 20150105
  Transmission Date: 20150720
  Serious: No
  Sender: FDA-Public Use
  Company Number: US-GLAXOSMITHKLINE-A1067864A

PATIENT

DRUGS (13)
  1. LOVAZA [Suspect]
     Active Substance: OMEGA-3-ACID ETHYL ESTERS
     Indication: BLOOD CHOLESTEROL
     Dosage: 1 GRAM TWICE PER DAY, TOTAL DAILY DOSE OF 2 GRAMS
     Route: 065
  2. CLOPIDOGREL [Concomitant]
     Active Substance: CLOPIDOGREL BISULFATE
  3. MULTIVITAMIN [Concomitant]
     Active Substance: VITAMINS
  4. MINOCYCLINE [Concomitant]
     Active Substance: MINOCYCLINE\MINOCYCLINE HYDROCHLORIDE
  5. ZOLPIDEM [Concomitant]
     Active Substance: ZOLPIDEM\ZOLPIDEM TARTRATE
  6. CALCIUM [Concomitant]
     Active Substance: CALCIUM
  7. CARVEDILOL. [Concomitant]
     Active Substance: CARVEDILOL
  8. SUPER B [Concomitant]
  9. RANEXA [Concomitant]
     Active Substance: RANOLAZINE
  10. ACZONE [Concomitant]
     Active Substance: DAPSONE
  11. SIMVASTATIN. [Concomitant]
     Active Substance: SIMVASTATIN
  12. COQ10 [Concomitant]
     Active Substance: UBIDECARENONE
  13. ASPIRIN. [Concomitant]
     Active Substance: ASPIRIN

REACTIONS (1)
  - Drug dose omission [Unknown]
